FAERS Safety Report 8533825-1 (Version None)
Quarter: 2012Q3

REPORT INFORMATION
  Report Type: 
  Country: None (occurrence: None)
  Receive Date: 20120724
  Receipt Date: 20120720
  Transmission Date: 20120928
  Serious: Yes (Life-Threatening, Hospitalization, Disabling)
  Sender: FDA-Public Use
  Company Number: JP-TEVA-347828USA

PATIENT
  Age: 54 Year
  Sex: Male

DRUGS (5)
  1. RITUXIMAB [Suspect]
     Indication: B-CELL LYMPHOMA
     Dosage: 4 CYCLES, ONE DAY EACH
  2. CYCLOPHOSPHAMIDE [Concomitant]
     Indication: B-CELL LYMPHOMA
     Dosage: 1200 MILLIGRAM;
     Dates: start: 20110927, end: 20111017
  3. PIRARUBICIN HYDROCHLORIDE [Concomitant]
     Indication: B-CELL LYMPHOMA
     Dosage: 80 MILLIGRAM;
     Dates: start: 20110927, end: 20111017
  4. TREANDA [Suspect]
     Indication: B-CELL LYMPHOMA
     Route: 042
     Dates: start: 20110413
  5. PREDNISOLONE [Concomitant]
     Indication: B-CELL LYMPHOMA
     Dosage: 2 MILLIGRAM;
     Dates: start: 20110927, end: 20111017

REACTIONS (3)
  - CYTOMEGALOVIRUS ENTEROCOLITIS [None]
  - CYTOMEGALOVIRUS HEPATITIS [None]
  - CYTOMEGALOVIRUS CHORIORETINITIS [None]
